FAERS Safety Report 8943396 (Version 1)
Quarter: 2012Q4

REPORT INFORMATION
  Report Type: 
  Country: BR (occurrence: BR)
  Receive Date: 20121204
  Receipt Date: 20121204
  Transmission Date: 20130627
  Serious: Yes (Other)
  Sender: FDA-Public Use
  Company Number: BR-JNJFOC-20121200027

PATIENT
  Sex: Female

DRUGS (4)
  1. TYLENOL [Suspect]
     Indication: HEADACHE
     Route: 048
  2. TYLENOL [Suspect]
     Route: 065
  3. TYLENOL [Suspect]
     Indication: PRODUCT USED FOR UNKNOWN INDICATION
     Route: 065
  4. NORFLOXACIN [Suspect]
     Indication: URINARY TRACT INFECTION
     Route: 065

REACTIONS (3)
  - Hypoaesthesia [Recovering/Resolving]
  - Muscle tightness [Recovering/Resolving]
  - Burning sensation [Recovering/Resolving]
